FAERS Safety Report 7241082-1 (Version None)
Quarter: 2011Q1

REPORT INFORMATION
  Report Type: 
  Country: None (occurrence: None)
  Receive Date: 20110124
  Receipt Date: 20110111
  Transmission Date: 20110831
  Serious: Yes (Hospitalization, Other)
  Sender: FDA-Public Use
  Company Number: US-JNJCH-2011000865

PATIENT
  Age: 50 Year
  Sex: Female
  Weight: 81.6 kg

DRUGS (2)
  1. ROLAIDS MULTI-SYMPTOM [Suspect]
     Indication: FLATULENCE
     Dosage: TEXT:TWO TABLETS EVERY 6-8 HRS ONCE MONTHLY
     Route: 048
  2. ROLAIDS REGULAR CHERRY [Suspect]
     Indication: PRODUCT USED FOR UNKNOWN INDICATION
     Dosage: TEXT:TWICE A DAY
     Route: 048

REACTIONS (7)
  - EXPIRED DRUG ADMINISTERED [None]
  - DEHYDRATION [None]
  - CHEST PAIN [None]
  - DIARRHOEA [None]
  - NAUSEA [None]
  - HAEMATEMESIS [None]
  - MALAISE [None]
